FAERS Safety Report 5270496-4 (Version None)
Quarter: 2007Q1

REPORT INFORMATION
  Report Type: 
  Country: None (occurrence: None)
  Receive Date: 20070320
  Receipt Date: 20070312
  Transmission Date: 20070707
  Serious: Yes (Hospitalization)
  Sender: FDA-Public Use
  Company Number: US-MERCK-0703USA02186

PATIENT
  Age: 63 Year
  Sex: Male

DRUGS (3)
  1. ZETIA [Suspect]
     Indication: BLOOD CHOLESTEROL
     Route: 048
     Dates: start: 20070212
  2. ZETIA [Suspect]
     Indication: WEIGHT CONTROL
     Route: 048
     Dates: start: 20070212
  3. VYTORIN [Concomitant]
     Route: 065

REACTIONS (3)
  - DYSPNOEA [None]
  - INTENTIONAL DRUG MISUSE [None]
  - OVERDOSE [None]
